FAERS Safety Report 6814131-X (Version None)
Quarter: 2010Q3

REPORT INFORMATION
  Report Type: 
  Country: None (occurrence: None)
  Receive Date: 20100702
  Receipt Date: 20100218
  Transmission Date: 20110219
  Serious: No
  Sender: FDA-Public Use
  Company Number: A0845205A

PATIENT
  Sex: Female

DRUGS (2)
  1. ADVAIR DISKUS 100/50 [Suspect]
     Indication: ASTHMA
     Route: 055
     Dates: start: 20091201, end: 20100201
  2. ALBUTEROL [Concomitant]

REACTIONS (3)
  - BRONCHOSPASM [None]
  - CHEILITIS [None]
  - SWOLLEN TONGUE [None]
